FAERS Safety Report 4385521-2 (Version None)
Quarter: 2004Q2

REPORT INFORMATION
  Report Type: 
  Country: None (occurrence: None)
  Receive Date: 20040628
  Receipt Date: 20040617
  Transmission Date: 20050107
  Serious: Yes (Hospitalization)
  Sender: FDA-Public Use
  Company Number: US-BRISTOL-MYERS SQUIBB COMPANY-12622957

PATIENT
  Age: 84 Year
  Sex: Male

DRUGS (14)
  1. METFORMIN HCL [Suspect]
     Route: 048
  2. GLIPIZIDE [Concomitant]
  3. FLUTICASONE PROPIONATE [Concomitant]
     Dosage: 2 PUFFS TWICE A DAY
  4. PREDNISONE [Concomitant]
  5. ASPIRIN [Concomitant]
  6. IPRATROPIUM BROMIDE [Concomitant]
     Dosage: 2 DOSAGE FORMS 4 TIMES A DAY
  7. PIOGLITAZONE HCL [Concomitant]
  8. FUROSEMIDE [Concomitant]
  9. INSULIN [Concomitant]
  10. BETOPTIC [Concomitant]
     Route: 031
  11. DICLOFENAC SODIUM [Concomitant]
     Route: 031
  12. DORZOLAMIDE [Concomitant]
  13. POTASSIUM SUPPLEMENT [Concomitant]
  14. MONTELUKAST [Concomitant]
     Indication: DYSPNOEA

REACTIONS (1)
  - RESPIRATORY ALKALOSIS [None]
